FAERS Safety Report 17147931 (Version 1)
Quarter: 2019Q4

REPORT INFORMATION
  Report Type: Spontaneous
  Country: US (occurrence: US)
  Receive Date: 20191212
  Receipt Date: 20191212
  Transmission Date: 20200122
  Serious: Yes (Death, Hospitalization, Other)
  Sender: FDA-Public Use
  Company Number: US-PURDUE PHARMA-USA-2019-0147890

PATIENT
  Age: 5 Year
  Sex: Female

DRUGS (1)
  1. MORPHINE SULFATE (SIMILAR TO NDA 19-516) [Suspect]
     Active Substance: MORPHINE SULFATE
     Indication: PRODUCT USED FOR UNKNOWN INDICATION
     Dosage: UNK
     Route: 048

REACTIONS (5)
  - Accidental overdose [Fatal]
  - Victim of homicide [Fatal]
  - Unresponsive to stimuli [Unknown]
  - Product administered to patient of inappropriate age [Not Recovered/Not Resolved]
  - Victim of child abuse [Not Recovered/Not Resolved]

NARRATIVE: CASE EVENT DATE: 2018
